FAERS Safety Report 4319349-6 (Version None)
Quarter: 2004Q1

REPORT INFORMATION
  Report Type: 
  Country: None (occurrence: None)
  Receive Date: 20040316
  Receipt Date: 20040308
  Transmission Date: 20041129
  Serious: No
  Sender: FDA-Public Use
  Company Number: 2004GB00503

PATIENT
  Age: 82 Year
  Sex: Female
  Weight: 68 kg

DRUGS (4)
  1. PULMICORT [Suspect]
     Dosage: SPANISH IMPORT
     Dates: start: 19980101
  2. SEREVENT [Concomitant]
  3. OMEPRAZOLE [Concomitant]
  4. BENDROFLUAZIDE [Concomitant]

REACTIONS (3)
  - ASTHENIA [None]
  - DYSPNOEA [None]
  - HEART RATE DECREASED [None]
